FAERS Safety Report 16648422 (Version 1)
Quarter: 2019Q3

REPORT INFORMATION
  Report Type: Spontaneous
  Country: US (occurrence: US)
  Receive Date: 20190617
  Receipt Date: 20190617
  Transmission Date: 20191004
  Serious: No
  Sender: FDA-Public Use
  Company Number: None

PATIENT

DRUGS (2)
  1. AMOXICILLIN. [Suspect]
     Active Substance: AMOXICILLIN
  2. TESTOSTERONE. [Suspect]
     Active Substance: TESTOSTERONE

REACTIONS (1)
  - Drug dispensed to wrong patient [None]
